FAERS Safety Report 9367408 (Version 2)
Quarter: 2013Q3

REPORT INFORMATION
  Report Type: Spontaneous
  Country: US (occurrence: US)
  Receive Date: 20130625
  Receipt Date: 20130718
  Transmission Date: 20140515
  Serious: Yes (Death)
  Sender: FDA-Public Use
  Company Number: US-GILEAD-2013-0077575

PATIENT
  Age: 54 Year
  Sex: Female

DRUGS (27)
  1. LETAIRIS [Suspect]
     Indication: PULMONARY HYPERTENSION
     Dosage: 5 MG, QD
     Route: 048
     Dates: start: 201302
  2. LETAIRIS [Suspect]
     Indication: SCLERODERMA
  3. HYDROMORPHONE [Concomitant]
  4. ACETAMINOPHEN [Concomitant]
  5. TRAZODONE [Concomitant]
  6. ONDANSETRON [Concomitant]
  7. TADALAFIL [Concomitant]
  8. TRYPSIN COMPLEX [Concomitant]
  9. METOCLOPRAMIDE [Concomitant]
  10. LISINOPRIL [Concomitant]
  11. AMIODARONE [Concomitant]
  12. DOCUSATE [Concomitant]
  13. SENNA                              /00571901/ [Concomitant]
  14. CALCIUM CITRATE [Concomitant]
  15. CHOLECALCIFEROL [Concomitant]
  16. PANCREATIC ENZYMES [Concomitant]
  17. ASCORBIC ACID [Concomitant]
  18. MULTIPLE VITAMINS [Concomitant]
  19. NICOTINE [Concomitant]
  20. ZINC SULFATE [Concomitant]
  21. SINGULAIR [Concomitant]
  22. BONIVA [Concomitant]
  23. COMBIVENT [Concomitant]
  24. RESTASIS [Concomitant]
  25. TRACLEER                           /01587701/ [Concomitant]
  26. NEXIUM                             /01479302/ [Concomitant]
  27. PREDNISONE [Concomitant]

REACTIONS (3)
  - Pancreatitis [Fatal]
  - Pseudocyst [Fatal]
  - Respiratory failure [Fatal]
